FAERS Safety Report 6237409-X (Version None)
Quarter: 2009Q2

REPORT INFORMATION
  Report Type: 
  Country: None (occurrence: None)
  Receive Date: 20090619
  Receipt Date: 20090617
  Transmission Date: 20091009
  Serious: Yes (Hospitalization)
  Sender: FDA-Public Use
  Company Number: GBWYE086525OCT05

PATIENT
  Age: 7 Year
  Sex: Female

DRUGS (4)
  1. IBUPROFEN [Suspect]
     Indication: PYREXIA
     Dosage: 100 MG EVERY 1 TOT
     Route: 065
  2. IBUPROFEN [Suspect]
     Indication: COUGH
  3. FLOXACILLIN SODIUM [Suspect]
     Indication: PYREXIA
     Dosage: UNKNOWN
     Route: 065
  4. FLOXACILLIN SODIUM [Suspect]
     Indication: COUGH

REACTIONS (1)
  - RENAL FAILURE CHRONIC [None]
